FAERS Safety Report 5046562-5 (Version None)
Quarter: 2006Q2

REPORT INFORMATION
  Report Type: 
  Country: None (occurrence: None)
  Receive Date: 20060630
  Receipt Date: 20060626
  Transmission Date: 20061013
  Serious: Yes (Other)
  Sender: FDA-Public Use
  Company Number: GXKR2006DE03619

PATIENT
  Age: 38 Year
  Sex: Female

DRUGS (1)
  1. DOXYCYCLINE [Suspect]
     Dosage: 200 MG, ORAL
     Route: 048

REACTIONS (2)
  - BENIGN INTRACRANIAL HYPERTENSION [None]
  - HEADACHE [None]
